FAERS Safety Report 17093582 (Version 1)
Quarter: 2019Q4

REPORT INFORMATION
  Report Type: Spontaneous
  Country: US (occurrence: US)
  Receive Date: 20191129
  Receipt Date: 20191129
  Transmission Date: 20200122
  Serious: No
  Sender: FDA-Public Use
  Company Number: US-ASTRAZENECA-2019SF56495

PATIENT
  Age: 32264 Day
  Sex: Male
  Weight: 54.4 kg

DRUGS (3)
  1. BEVESPI AEROSPHERE [Suspect]
     Active Substance: FORMOTEROL FUMARATE\GLYCOPYRROLATE
     Indication: CHRONIC OBSTRUCTIVE PULMONARY DISEASE
     Dosage: 9 MCG/4.8 MCG, 2 INHALATIONS TWICE A DAY
     Route: 055
     Dates: start: 201905
  2. LATANOPROST. [Concomitant]
     Active Substance: LATANOPROST
     Indication: EYE BURNS
     Route: 047
  3. LEVOBUNOLOL [Concomitant]
     Active Substance: LEVOBUNOLOL
     Indication: BLOOD PRESSURE MEASUREMENT
     Route: 047

REACTIONS (4)
  - Drug delivery system malfunction [Unknown]
  - Wrong technique in device usage process [Not Recovered/Not Resolved]
  - Malaise [Not Recovered/Not Resolved]
  - Intentional device misuse [Recovered/Resolved]

NARRATIVE: CASE EVENT DATE: 20191028
